FAERS Safety Report 8677932 (Version 5)
Quarter: 2014Q2

REPORT INFORMATION
  Report Type: Report from Study
  Country: US (occurrence: US)
  Receive Date: 20120723
  Receipt Date: 20140221
  Transmission Date: 20141212
  Serious: Yes (Other)
  Sender: FDA-Public Use
  Company Number: US-ROCHE-1088158

PATIENT
  Age: 82 Year
  Sex: Female

DRUGS (3)
  1. BEVACIZUMAB [Suspect]
     Indication: RETINAL VEIN OCCLUSION
     Dosage: FREQUENCY: OFF AND ON
     Route: 042
     Dates: start: 2010
  2. BEVACIZUMAB [Suspect]
     Route: 050
  3. RANIBIZUMAB [Suspect]
     Indication: RETINAL VEIN OCCLUSION
     Route: 050
     Dates: start: 20120711

REACTIONS (23)
  - Rib fracture [Unknown]
  - Hand fracture [Unknown]
  - Road traffic accident [Unknown]
  - Ocular hyperaemia [Unknown]
  - Ocular hyperaemia [Unknown]
  - Dizziness [Unknown]
  - Fall [Unknown]
  - Visual impairment [Unknown]
  - Eye pain [Unknown]
  - Visual impairment [Unknown]
  - Productive cough [Unknown]
  - Asthenia [Unknown]
  - Erythema [Unknown]
  - Localised infection [Unknown]
  - Neuropathy peripheral [Unknown]
  - Blindness [Unknown]
  - Pain in extremity [Unknown]
  - Lip pain [Unknown]
  - Pain [Unknown]
  - Vision blurred [Unknown]
  - Pain in extremity [Unknown]
  - Arthralgia [Unknown]
  - Visual impairment [Unknown]
